FAERS Safety Report 18585330 (Version 1)
Quarter: 2020Q4

REPORT INFORMATION
  Report Type: Spontaneous
  Country: US (occurrence: US)
  Receive Date: 20201204
  Receipt Date: 20201204
  Transmission Date: 20210114
  Serious: Yes (Hospitalization)
  Sender: FDA-Public Use
  Company Number: None

PATIENT
  Age: 33 Year
  Sex: Female
  Weight: 79.65 kg

DRUGS (1)
  1. MONTELUKAST [Suspect]
     Active Substance: MONTELUKAST SODIUM
     Indication: ALLERGIC SINUSITIS
     Route: 048
     Dates: start: 20190619, end: 20200308

REACTIONS (3)
  - Therapy cessation [None]
  - Psychotic disorder [None]
  - Insomnia [None]

NARRATIVE: CASE EVENT DATE: 20200308
